FAERS Safety Report 6771725-8 (Version None)
Quarter: 2010Q2

REPORT INFORMATION
  Report Type: 
  Country: None (occurrence: None)
  Receive Date: 20100616
  Receipt Date: 20091001
  Transmission Date: 20101027
  Serious: No
  Sender: FDA-Public Use
  Company Number: US-ASTRAZENECA-2009SE17319

PATIENT
  Age: 92 Year
  Sex: Male
  Weight: 63.6 kg

DRUGS (5)
  1. ATACAND [Suspect]
     Indication: HYPERTENSION
     Route: 048
     Dates: end: 20090701
  2. ATACAND [Suspect]
     Route: 048
     Dates: start: 20090701
  3. CREON [Suspect]
     Route: 048
     Dates: start: 20090601
  4. OMEPRAZOLE [Concomitant]
  5. ATENOLOL [Concomitant]

REACTIONS (2)
  - DIZZINESS [None]
  - FALL [None]
